FAERS Safety Report 8159465 (Version 2)
Quarter: 2013Q1

REPORT INFORMATION
  Report Type: Spontaneous
  Country: None (occurrence: None)
  Receive Date: 20110916
  Receipt Date: 20130329
  Transmission Date: 20140127
  Serious: Yes (Other)
  Sender: FDA-Public Use
  Company Number: AUR-APL-2011-04904

PATIENT
  Age: 47 Year
  Sex: Male

DRUGS (2)
  1. FLUOXETINE [Suspect]
     Indication: PRODUCT USED FOR UNKNOWN INDICATION
     Dosage: 40 MG (40 MG,L IN 1 D)
  2. ZAPONEX [Suspect]
     Indication: SCHIZOPHRENIA
     Dosage: SEE IMAGE
     Route: 048
     Dates: start: 20090728

REACTIONS (7)
  - Cough [None]
  - Decreased appetite [None]
  - Weight decreased [None]
  - Lethargy [None]
  - Diarrhoea [None]
  - Hyperhidrosis [None]
  - Abdominal pain [None]
